FAERS Safety Report 17284954 (Version 1)
Quarter: 2020Q1

REPORT INFORMATION
  Report Type: Spontaneous
  Country: GB (occurrence: GB)
  Receive Date: 20200117
  Receipt Date: 20200117
  Transmission Date: 20200409
  Serious: Yes (Other)
  Sender: FDA-Public Use
  Company Number: GB-PFIZER INC-2020018018

PATIENT
  Age: 30 Year
  Sex: Male

DRUGS (7)
  1. LISDEXAMFETAMINE [Suspect]
     Active Substance: LISDEXAMFETAMINE
     Dosage: 50 MG, 1X/DAY (50 MILLIGRAM, AM)
     Dates: start: 201910
  2. GABAPENTIN. [Concomitant]
     Active Substance: GABAPENTIN
     Dosage: 900 MG, DAILY (300 MILLIGRAM, TID)
  3. SERTRALINE HCL [Suspect]
     Active Substance: SERTRALINE HYDROCHLORIDE
     Dosage: UNK
     Dates: start: 201910, end: 2019
  4. CLOZARIL [Suspect]
     Active Substance: CLOZAPINE
     Indication: SCHIZOPHRENIA
     Dosage: 450 MG, UNK (450 MILLIGRAM)
     Route: 048
     Dates: start: 20080204
  5. CLOZARIL [Suspect]
     Active Substance: CLOZAPINE
     Dosage: 425 MG, 1X/DAY (425 MILLIGRAM, PM)
     Route: 048
     Dates: start: 20191205
  6. OMACOR [Concomitant]
     Active Substance: OMEGA-3-ACID ETHYL ESTERS
     Dosage: UNK UNK, 2X/DAY (UNK, BID)
  7. LISDEXAMFETAMINE [Suspect]
     Active Substance: LISDEXAMFETAMINE
     Dosage: 20 MG, UNK (20 MILLIGRAM)
     Dates: start: 201911

REACTIONS (9)
  - Serotonin syndrome [Unknown]
  - Mean cell haemoglobin concentration decreased [Recovered/Resolved]
  - Platelet count increased [Recovered/Resolved]
  - Viral infection [Unknown]
  - Malaise [Unknown]
  - Basophil count increased [Not Recovered/Not Resolved]
  - Neutrophil count increased [Recovered/Resolved]
  - Blood creatine phosphokinase increased [Recovered/Resolved]
  - Red cell distribution width increased [Recovered/Resolved]

NARRATIVE: CASE EVENT DATE: 20121204
